FAERS Safety Report 4659438-X (Version None)
Quarter: 2005Q2

REPORT INFORMATION
  Report Type: 
  Country: None (occurrence: None)
  Receive Date: 20050412
  Receipt Date: 20050217
  Transmission Date: 20051028
  Serious: No
  Sender: FDA-Public Use
  Company Number: 2005S1000024

PATIENT
  Age: 69 Year
  Sex: Female
  Weight: 99 kg

DRUGS (13)
  1. CUBICIN [Suspect]
     Indication: ARTHRITIS INFECTIVE
     Dosage: 500 MG; Q24H; IV
     Route: 042
     Dates: start: 20050215
  2. CUBICIN [Suspect]
     Indication: STAPHYLOCOCCAL INFECTION
     Dosage: 500 MG; Q24H; IV
     Route: 042
     Dates: start: 20050215
  3. VANCOMYCIN [Concomitant]
  4. RIFAMPIN [Concomitant]
  5. METFORMIN [Concomitant]
  6. IRBESARTAN [Concomitant]
  7. DOCUSATE [Concomitant]
  8. GLIBENCLAMIDE [Concomitant]
  9. COLESIPOL [Concomitant]
  10. INSULIN [Concomitant]
  11. PANTOPRAZOLE [Concomitant]
  12. WARFARIN [Concomitant]
  13. HYDROMORPHONE [Concomitant]

REACTIONS (1)
  - BLOOD CREATININE INCREASED [None]
